FAERS Safety Report 25993318 (Version 1)
Quarter: 2025Q4

REPORT INFORMATION
  Report Type: Report from Study
  Country: US (occurrence: US)
  Receive Date: 20251104
  Receipt Date: 20251104
  Transmission Date: 20260118
  Serious: Yes (Hospitalization)
  Sender: ABBVIE
  Company Number: US-ABBVIE-6524005

PATIENT
  Sex: Male

DRUGS (1)
  1. CREON [Suspect]
     Active Substance: PANCRELIPASE AMYLASE\PANCRELIPASE LIPASE\PANCRELIPASE PROTEASE
     Indication: Product used for unknown indication
     Route: 048

REACTIONS (6)
  - Hypoaesthesia [Unknown]
  - Peripheral arterial occlusive disease [Unknown]
  - Nausea [Unknown]
  - Insomnia [Unknown]
  - Feeding disorder [Unknown]
  - Psychotic disorder [Not Recovered/Not Resolved]
